FAERS Safety Report 5256517-3 (Version None)
Quarter: 2007Q1

REPORT INFORMATION
  Report Type: 
  Country: None (occurrence: None)
  Receive Date: 20070306
  Receipt Date: 20070222
  Transmission Date: 20070707
  Serious: Yes (Other)
  Sender: FDA-Public Use
  Company Number: PHBS2007JP02521

PATIENT
  Age: 4 Year
  Sex: Male

DRUGS (2)
  1. TEGRETOL [Suspect]
     Indication: EPILEPSY
     Dosage: 0.1 G, QHS
     Route: 048
     Dates: start: 20070122
  2. TEGRETOL [Suspect]
     Dosage: 0.1 MG, BID
     Route: 048

REACTIONS (1)
  - CONVULSION [None]
